FAERS Safety Report 4960476-8 (Version None)
Quarter: 2006Q2

REPORT INFORMATION
  Report Type: 
  Country: None (occurrence: None)
  Receive Date: 20060403
  Receipt Date: 20060323
  Transmission Date: 20061013
  Serious: Yes (Other)
  Sender: FDA-Public Use
  Company Number: PHBS2006JP04423

PATIENT
  Age: 54 Year
  Sex: Male

DRUGS (3)
  1. SALAGEN [Suspect]
     Indication: DRY MOUTH
     Dosage: 15 MG/DAY
     Route: 048
     Dates: start: 20060119, end: 20060201
  2. ALOSENN [Concomitant]
     Route: 048
  3. LOXONIN [Concomitant]

REACTIONS (3)
  - DYSPHONIA [None]
  - PHARYNGEAL OEDEMA [None]
  - PYREXIA [None]
